FAERS Safety Report 9886305 (Version 1)
Quarter: 2014Q1

REPORT INFORMATION
  Report Type: Spontaneous
  Country: US (occurrence: US)
  Receive Date: 20140210
  Receipt Date: 20140210
  Transmission Date: 20141002
  Serious: Yes (Death, Other)
  Sender: FDA-Public Use
  Company Number: PHHY2014US015455

PATIENT
  Age: 12 Year
  Sex: Male

DRUGS (8)
  1. CICLOSPORIN [Suspect]
     Indication: GRAFT VERSUS HOST DISEASE
  2. MYCOPHENOLATE MOFETIL [Suspect]
     Indication: GRAFT VERSUS HOST DISEASE
  3. ACETAMINOPHEN [Concomitant]
     Dosage: 15 MG/KG, UNK
  4. DIPHENHYDRAMINE [Concomitant]
     Route: 048
  5. FLUDARABINE [Concomitant]
     Dosage: 150 MG/M2, UNK
  6. MELPHALAN [Concomitant]
     Dosage: 140 MG/M2, UNK
  7. ALEMTUZUMAB [Concomitant]
  8. INFLIXIMAB [Concomitant]

REACTIONS (4)
  - Graft versus host disease in intestine [Fatal]
  - Posterior reversible encephalopathy syndrome [Unknown]
  - Haemorrhage intracranial [Unknown]
  - Post transplant lymphoproliferative disorder [Unknown]
